FAERS Safety Report 7558635-3 (Version None)
Quarter: 2011Q2

REPORT INFORMATION
  Report Type: 
  Country: None (occurrence: None)
  Receive Date: 20110621
  Receipt Date: 20110610
  Transmission Date: 20111010
  Serious: Yes (Hospitalization)
  Sender: FDA-Public Use
  Company Number: US-BIOGENIDEC-2011BI004318

PATIENT
  Age: 42 Year
  Sex: Male
  Weight: 88 kg

DRUGS (1)
  1. TYSABRI [Suspect]
     Indication: MULTIPLE SCLEROSIS
     Route: 042
     Dates: start: 20101124

REACTIONS (6)
  - SLEEP DISORDER [None]
  - MULTIPLE SCLEROSIS RELAPSE [None]
  - MOBILITY DECREASED [None]
  - IRRITABILITY [None]
  - URINARY TRACT INFECTION [None]
  - MEMORY IMPAIRMENT [None]
